FAERS Safety Report 9740991 (Version 1)
Quarter: 2013Q4

REPORT INFORMATION
  Report Type: Spontaneous
  Country: US (occurrence: US)
  Receive Date: 20131209
  Receipt Date: 20131209
  Transmission Date: 20140711
  Serious: No
  Sender: FDA-Public Use
  Company Number: US-BIOGENIDEC-2013BI101959

PATIENT
  Age: 56 Year
  Sex: Female

DRUGS (6)
  1. TECFIDERA [Suspect]
     Indication: MULTIPLE SCLEROSIS
     Route: 048
     Dates: start: 20130911
  2. VITAMIN B-12 [Concomitant]
  3. CALCIUM CARBONATE [Concomitant]
  4. ECOTRIN [Concomitant]
  5. VITAMIN D [Concomitant]
  6. SIMVASTATIN [Concomitant]

REACTIONS (1)
  - Diarrhoea [Unknown]
